FAERS Safety Report 11174081 (Version 1)
Quarter: 2015Q2

REPORT INFORMATION
  Report Type: Spontaneous
  Country: None (occurrence: None)
  Receive Date: 20150605
  Receipt Date: 20150605
  Transmission Date: 20150821
  Serious: Yes (Other)
  Sender: FDA-Public Use
  Company Number: CC400258356

PATIENT
  Age: 33 Year
  Sex: Female

DRUGS (3)
  1. ATROPINE [Concomitant]
     Active Substance: ATROPINE
  2. SODIUM CHLORIDE. [Suspect]
     Active Substance: SODIUM CHLORIDE
     Route: 042
  3. PARACETAMOL (ACETAMINOPHEN) [Concomitant]
     Active Substance: ACETAMINOPHEN

REACTIONS (2)
  - Exposure during pregnancy [None]
  - Vaginal haemorrhage [None]
